FAERS Safety Report 14122501 (Version 16)
Quarter: 2019Q2

REPORT INFORMATION
  Report Type: Report from Study
  Country: US (occurrence: US)
  Receive Date: 20171024
  Receipt Date: 20190604
  Transmission Date: 20190711
  Serious: Yes (Hospitalization, Other)
  Sender: FDA-Public Use
  Company Number: US-ACTELION-A-US2015-127534

PATIENT
  Age: 50 Year
  Sex: Female
  Weight: 56.69 kg

DRUGS (14)
  1. VELETRI [Suspect]
     Active Substance: EPOPROSTENOL
     Dosage: 126 NG/KG, PER MIN
     Route: 042
  2. ADEMPAS [Suspect]
     Active Substance: RIOCIGUAT
     Dosage: 1.0 MG, TID
     Route: 065
     Dates: start: 20170811
  3. VELETRI [Suspect]
     Active Substance: EPOPROSTENOL
     Dosage: 110 NG/KG, PER MIN
     Route: 042
     Dates: end: 20180507
  4. REVATIO [Concomitant]
     Active Substance: SILDENAFIL CITRATE
  5. VELETRI [Suspect]
     Active Substance: EPOPROSTENOL
     Indication: PULMONARY ARTERIAL HYPERTENSION
     Dosage: 126 NG/KG, PER MIN
     Route: 042
  6. VELETRI [Suspect]
     Active Substance: EPOPROSTENOL
     Dosage: 100 NG/KG, PER MIN
     Route: 042
     Dates: start: 20130611
  7. ADEMPAS [Suspect]
     Active Substance: RIOCIGUAT
     Dosage: 2 MG, UNK
     Route: 065
     Dates: start: 20171122
  8. OPSUMIT [Suspect]
     Active Substance: MACITENTAN
     Indication: PULMONARY ARTERIAL HYPERTENSION
     Dosage: 10 MG, QD
     Route: 048
     Dates: start: 20141119
  9. ADEMPAS [Suspect]
     Active Substance: RIOCIGUAT
     Indication: PRODUCT USED FOR UNKNOWN INDICATION
     Dosage: 2 MG, UNK
     Route: 065
     Dates: start: 20171122
  10. AMLODIPINE [Concomitant]
     Active Substance: AMLODIPINE BESYLATE
  11. OXYGEN. [Concomitant]
     Active Substance: OXYGEN
  12. OPSUMIT [Suspect]
     Active Substance: MACITENTAN
     Dosage: 10 MG, QD
     Route: 048
  13. ADEMPAS [Suspect]
     Active Substance: RIOCIGUAT
     Dosage: 1.5 MG, UNK
     Route: 065
     Dates: start: 20171028
  14. COUMADIN [Concomitant]
     Active Substance: WARFARIN SODIUM

REACTIONS (37)
  - Device occlusion [Unknown]
  - Central venous catheterisation [Unknown]
  - Chest pain [Unknown]
  - Peripheral swelling [Unknown]
  - Abdominal pain upper [Unknown]
  - Diarrhoea [Unknown]
  - Fluid retention [Unknown]
  - Eye swelling [Unknown]
  - Headache [Unknown]
  - Nasal congestion [Unknown]
  - Weight increased [Unknown]
  - Intra-abdominal fluid collection [Unknown]
  - Joint stiffness [Unknown]
  - Retching [Not Recovered/Not Resolved]
  - Insomnia [Unknown]
  - Regurgitation [Unknown]
  - Abdominal distension [Unknown]
  - Abdominal discomfort [Unknown]
  - Respiratory tract infection [Unknown]
  - Clostridium difficile infection [Unknown]
  - Vomiting [Not Recovered/Not Resolved]
  - Weight decreased [Unknown]
  - Decreased appetite [Unknown]
  - Malaise [Unknown]
  - Agitation [Unknown]
  - Nasopharyngitis [Unknown]
  - Swelling face [Unknown]
  - Loss of personal independence in daily activities [Unknown]
  - Sinusitis [Unknown]
  - Device alarm issue [Unknown]
  - Lung transplant [Unknown]
  - Nausea [Not Recovered/Not Resolved]
  - Constipation [Unknown]
  - Echocardiogram abnormal [Unknown]
  - Dyspnoea [Unknown]
  - Flushing [Unknown]
  - Blood pressure abnormal [Unknown]

NARRATIVE: CASE EVENT DATE: 20170712
